FAERS Safety Report 14070795 (Version 1)
Quarter: 2017Q4

REPORT INFORMATION
  Report Type: Spontaneous
  Country: US (occurrence: US)
  Receive Date: 20171010
  Receipt Date: 20171010
  Transmission Date: 20180321
  Serious: No
  Sender: FDA-Public Use
  Company Number: US-BAUSCH-BL-2017-023061

PATIENT
  Sex: Female
  Weight: 43.13 kg

DRUGS (2)
  1. IMITREX [Concomitant]
     Active Substance: SUMATRIPTAN SUCCINATE
     Indication: MIGRAINE
  2. METROGEL-VAGINAL [Suspect]
     Active Substance: METRONIDAZOLE
     Indication: ESCHERICHIA INFECTION
     Dosage: ONE APPLICATOR FULL INSERTED ONCE DAILY FOR 5 DAYS
     Route: 067

REACTIONS (1)
  - Sinusitis [Unknown]
